FAERS Safety Report 4310611-X (Version None)
Quarter: 2004Q1

REPORT INFORMATION
  Report Type: 
  Country: None (occurrence: None)
  Receive Date: 20040301
  Receipt Date: 20031030
  Transmission Date: 20041129
  Serious: No
  Sender: FDA-Public Use
  Company Number: WAES 0311USA00276

PATIENT
  Age: 75 Year
  Sex: Male

DRUGS (6)
  1. ZETIA [Suspect]
     Dosage: 10MG/DAILY/PO
     Route: 048
     Dates: start: 20030911
  2. COUMADIN [Concomitant]
  3. ... [Concomitant]
  4. CRESTOR [Concomitant]
  5. ZOCOR [Concomitant]
  6. ... [Concomitant]

REACTIONS (5)
  - DECREASED APPETITE [None]
  - INFLUENZA LIKE ILLNESS [None]
  - INTERNATIONAL NORMALISED RATIO DECREASED [None]
  - INTERNATIONAL NORMALISED RATIO INCREASED [None]
  - PAIN IN EXTREMITY [None]
